FAERS Safety Report 7910576-5 (Version None)
Quarter: 2011Q4

REPORT INFORMATION
  Report Type: 
  Country: None (occurrence: None)
  Receive Date: 20111111
  Receipt Date: 20111108
  Transmission Date: 20120403
  Serious: Yes (Hospitalization, Other)
  Sender: FDA-Public Use
  Company Number: PHEH2011US00598

PATIENT
  Age: 60 Year
  Sex: Female
  Weight: 78.005 kg

DRUGS (4)
  1. TOBI [Suspect]
     Indication: CYSTIC FIBROSIS
     Dosage: 300 MG, BID (28 DAYS ON AND 28 DAYS OFF)
     Dates: start: 20110322
  2. TOBI [Interacting]
     Dosage: 300 MG, BID (28 DAYS ON AND 28 DAYS OFF)
     Dates: start: 20110411
  3. LASIX [Interacting]
  4. PULMOZYME [Concomitant]

REACTIONS (3)
  - DRUG INTERACTION [None]
  - CARDIAC DISORDER [None]
  - FLUID OVERLOAD [None]
